FAERS Safety Report 23853338 (Version 1)
Quarter: 2024Q2

REPORT INFORMATION
  Report Type: Spontaneous
  Country: IT (occurrence: IT)
  Receive Date: 20240514
  Receipt Date: 20240514
  Transmission Date: 20240716
  Serious: Yes (Other)
  Sender: FDA-Public Use
  Company Number: IT-SUN PHARMACEUTICAL INDUSTRIES LTD-2024RR-445884

PATIENT
  Sex: Male

DRUGS (5)
  1. CEFTAZIDIME [Suspect]
     Active Substance: CEFTAZIDIME
     Indication: Antibiotic therapy
     Dosage: 30 MILLIGRAM/KILOGRAM, 1DOSE/12HOUR
     Route: 040
  2. MEROPENEM [Suspect]
     Active Substance: MEROPENEM
     Indication: Antibiotic therapy
     Dosage: UNK
     Route: 040
  3. VANCOMYCIN [Suspect]
     Active Substance: VANCOMYCIN
     Indication: Antibiotic therapy
     Dosage: 15 MILLIGRAM/KILOGRAM, 1DOSE/12HOUR
     Route: 040
  4. VANCOMYCIN [Suspect]
     Active Substance: VANCOMYCIN
     Dosage: 10 TO 25 MG/L
     Route: 040
  5. MICAFUNGIN [Suspect]
     Active Substance: MICAFUNGIN SODIUM
     Indication: Antifungal treatment
     Dosage: UNK
     Route: 065

REACTIONS (3)
  - C-reactive protein increased [Recovered/Resolved]
  - Staphylococcal infection [Recovered/Resolved]
  - Minimum inhibitory concentration increased [Unknown]
